FAERS Safety Report 18294556 (Version 5)
Quarter: 2024Q4

REPORT INFORMATION
  Report Type: Spontaneous
  Country: CA (occurrence: CA)
  Receive Date: 20200922
  Receipt Date: 20241007
  Transmission Date: 20250114
  Serious: Yes (Hospitalization, Other)
  Sender: ACCORD
  Company Number: None

PATIENT
  Age: 48 Year
  Sex: Female
  Weight: 106 kg

DRUGS (47)
  1. ONDANSETRON HYDROCHLORIDE [Suspect]
     Active Substance: ONDANSETRON HYDROCHLORIDE
     Indication: Supportive care
     Dosage: 8 MG, UNK, 8 MILLIGRAM, QD
  2. PACLITAXEL [Suspect]
     Active Substance: PACLITAXEL
     Indication: Breast cancer
     Dosage: LIQUID INTRAVENOUS, 303 MILLIGRAM
     Route: 042
  3. DOXORUBICIN [Suspect]
     Active Substance: DOXORUBICIN
     Indication: Breast cancer
     Dosage: SOLUTION INTRAVENOUS, ONCE EVERY 2 WEEKS, 136 MG, 1 EVERY 14 DAYS
     Route: 042
  4. FILGRASTIM [Suspect]
     Active Substance: FILGRASTIM
     Indication: Supportive care
     Dosage: 480 MICROGRAM, QD
     Route: 065
  5. CYCLOPHOSPHAMIDE [Suspect]
     Active Substance: CYCLOPHOSPHAMIDE
     Indication: Breast cancer female
  6. TYLENOL WITH CODEINE [Suspect]
     Active Substance: ACETAMINOPHEN\CODEINE PHOSPHATE
     Indication: Tardive dyskinesia
     Dosage: 30 MG, UNK, EVERY 4 HRS
     Route: 065
  7. ACETAMINOPHEN AND CODEINE [Suspect]
     Active Substance: ACETAMINOPHEN\CODEINE PHOSPHATE
     Indication: Tardive dyskinesia
     Dosage: 30 MG, Q.4H, 6 EVERY 1 DAYS
     Route: 065
  8. EMEND [Suspect]
     Active Substance: APREPITANT
     Indication: Supportive care
     Dosage: 125 MG, QD,
     Route: 042
  9. ZOFRAN [Suspect]
     Active Substance: ONDANSETRON HYDROCHLORIDE
     Indication: Supportive care
     Dosage: 8 MILLIGRAM
     Route: 048
  10. RANITIDINE [Suspect]
     Active Substance: RANITIDINE
     Indication: Tardive dyskinesia
     Dosage: 150 MG, BID, Q.O.WK
     Route: 048
  11. ACETAMINOPHEN\CAFFEINE\CODEINE PHOSPHATE [Suspect]
     Active Substance: ACETAMINOPHEN\CAFFEINE\CODEINE PHOSPHATE
     Indication: Product used for unknown indication
     Dosage: 30 MILLIGRAM, ONE EVERY 4 HOURS
     Route: 065
  12. DEXAMETHASONE [Suspect]
     Active Substance: DEXAMETHASONE
     Indication: Supportive care
     Dosage: 20 MG, QD
     Route: 048
  13. LORAZEPAM [Suspect]
     Active Substance: LORAZEPAM
     Indication: Tardive dyskinesia
     Dosage: 0.5 MG, BID, EVERY 12 HRS
     Route: 048
  14. LEVOFLOXACIN [Suspect]
     Active Substance: LEVOFLOXACIN
     Indication: Tardive dyskinesia
     Dosage: 500 MG, QD
     Route: 048
  15. METOCLOPRAMIDE [Suspect]
     Active Substance: METOCLOPRAMIDE
     Indication: Tardive dyskinesia
     Dosage: 10 MG, Q.6H
     Route: 048
  16. BETAMETHASONE [Suspect]
     Active Substance: BETAMETHASONE
     Indication: Tardive dyskinesia
     Dosage: 2 EVERY 1 DAY
     Route: 048
  17. ENOXAPARIN [Suspect]
     Active Substance: ENOXAPARIN
     Indication: Tardive dyskinesia
     Dosage: 150 MG, 1 EVERY 1 DAYS
     Route: 058
  18. PEGFILGRASTIM [Suspect]
     Active Substance: PEGFILGRASTIM
     Indication: Supportive care
     Dosage: 6 MG
     Route: 058
  19. CYCLOPHOSPHAMIDE [Suspect]
     Active Substance: CYCLOPHOSPHAMIDE
     Indication: Breast cancer
     Dosage: 1360 MG, 1 EVERY 14 DAYS, STRENGTH: 2000 MG/ VIAL, 1360 MILLIGRAM, Q.O.WK
     Route: 042
  20. TRASTUZUMAB [Suspect]
     Active Substance: TRASTUZUMAB
     Indication: Tardive dyskinesia
     Dosage: 626 MG, UNK, 626 MILLIGRAM, QD
     Route: 065
  21. PEGFILGRASTIM [Suspect]
     Active Substance: PEGFILGRASTIM
     Indication: Product used for unknown indication
     Dosage: 6 MILLIGRAM, QD
     Route: 058
  22. APREPITANT [Suspect]
     Active Substance: APREPITANT
     Indication: Supportive care
     Dosage: 80 MG, 1 EVERY 1 DAYS
  23. FILGRASTIM [Suspect]
     Active Substance: FILGRASTIM
     Indication: Supportive care
     Dosage: SOLUTION FOR INJECTION/INFUSION, 480 MICROGRAM, QD
     Route: 048
  24. EMEND [Suspect]
     Active Substance: APREPITANT
     Indication: Supportive care
     Dosage: CAPSULE, 80 MG, QD
     Route: 048
  25. EMEND [Suspect]
     Active Substance: APREPITANT
     Indication: Product used for unknown indication
     Dosage: 50 MG ONCE A DAY
     Route: 065
  26. RANITIDINE [Suspect]
     Active Substance: RANITIDINE
     Indication: Tardive dyskinesia
     Dosage: 150 MG, BID, EVERY 12 HRS
     Route: 048
  27. TRASTUZUMAB [Suspect]
     Active Substance: TRASTUZUMAB
     Indication: Tardive dyskinesia
     Dosage: 866 MG, UNK
     Route: 065
  28. CYCLOPHOSPHAMIDE [Suspect]
     Active Substance: CYCLOPHOSPHAMIDE
     Indication: Tardive dyskinesia
     Dosage: 243 MILLIGRAM
     Route: 042
  29. METOCLOPRAMIDE [Suspect]
     Active Substance: METOCLOPRAMIDE
     Indication: Product used for unknown indication
     Dosage: 4 EVERY 1 DAY, 10 MILLIGRAM, QID
     Route: 048
  30. ACETAMINOPHEN AND CODEINE [Suspect]
     Active Substance: ACETAMINOPHEN\CODEINE PHOSPHATE
     Indication: Tardive dyskinesia
     Dosage: 6 EVERY 1 DAYS
     Route: 065
  31. LORAZEPAM [Suspect]
     Active Substance: LORAZEPAM
     Indication: Product used for unknown indication
     Dosage: 0.5 MILLIGRAM, QD
     Route: 048
  32. LORAZEPAM [Suspect]
     Active Substance: LORAZEPAM
     Indication: Product used for unknown indication
     Dosage: 0.5 MILLIGRAM
     Route: 048
  33. LORAZEPAM [Suspect]
     Active Substance: LORAZEPAM
     Indication: Product used for unknown indication
     Dosage: 0.5 MILLIGRAM, BID
     Route: 048
  34. RANITIDINE [Suspect]
     Active Substance: RANITIDINE
     Indication: Product used for unknown indication
     Dosage: 150 MILLIGRAM
     Route: 048
  35. EMEND [Suspect]
     Active Substance: APREPITANT
     Indication: Product used for unknown indication
     Dosage: 125 MG, QD
     Route: 048
  36. DOXORUBICIN [Suspect]
     Active Substance: DOXORUBICIN
     Indication: Product used for unknown indication
     Dosage: 136 MG, Q.4H, SOLUTION FOR INJECTION/INFUSION
     Route: 042
  37. TRASTUZUMAB [Suspect]
     Active Substance: TRASTUZUMAB
     Indication: Product used for unknown indication
     Route: 048
  38. EMEND [Suspect]
     Active Substance: APREPITANT
     Indication: Product used for unknown indication
     Route: 048
  39. APREPITANT [Suspect]
     Active Substance: APREPITANT
     Indication: Supportive care
     Dosage: 125 MG
  40. FILGRASTIM [Suspect]
     Active Substance: FILGRASTIM
     Indication: Supportive care
     Route: 065
  41. LORAZEPAM [Suspect]
     Active Substance: LORAZEPAM
     Indication: Tardive dyskinesia
     Dosage: 1 MG, QD
     Route: 048
  42. LORAZEPAM [Suspect]
     Active Substance: LORAZEPAM
     Indication: Tardive dyskinesia
     Dosage: 1 MG, QD
  43. RANITIDINE [Suspect]
     Active Substance: RANITIDINE
     Indication: Tardive dyskinesia
     Dosage: 300 MG, QD
     Route: 048
  44. PACLITAXEL [Suspect]
     Active Substance: PACLITAXEL
     Indication: Breast cancer
     Dosage: LIQUID INTRAVENOUS, 393 MILLIGRAM
     Route: 042
  45. PACLITAXEL [Suspect]
     Active Substance: PACLITAXEL
     Indication: Breast cancer
     Dosage: LIQUID INTRAVENOUS, 243 MILLIGRAM
     Route: 042
  46. PACLITAXEL [Suspect]
     Active Substance: PACLITAXEL
     Indication: Breast cancer
     Dosage: LIQUID INTRAVENOUS, 303 MILLIGRAM
     Route: 042
  47. CYCLOPHOSPHAMIDE [Suspect]
     Active Substance: CYCLOPHOSPHAMIDE
     Indication: Breast cancer female

REACTIONS (11)
  - Nausea [Recovered/Resolved]
  - Pyrexia [Recovered/Resolved]
  - Rash [Recovered/Resolved]
  - Fatigue [Recovered/Resolved]
  - Dyspnoea [Recovered/Resolved]
  - Cough [Recovered/Resolved]
  - Gastrointestinal disorder [Recovered/Resolved]
  - Computerised tomogram thorax abnormal [Recovered/Resolved]
  - Atelectasis [Recovered/Resolved]
  - Hypoxia [Recovered/Resolved]
  - Off label use [Unknown]
